FAERS Safety Report 9158484 (Version 3)
Quarter: 2013Q4

REPORT INFORMATION
  Report Type: Report from Study
  Country: JP (occurrence: JP)
  Receive Date: 20130312
  Receipt Date: 20131007
  Transmission Date: 20140711
  Serious: Yes (Other)
  Sender: FDA-Public Use
  Company Number: JP-JNJFOC-20130305427

PATIENT
  Age: 45 Year
  Sex: Male
  Weight: 92 kg

DRUGS (10)
  1. STELARA [Suspect]
     Indication: PSORIASIS
     Route: 058
     Dates: start: 20120706
  2. STELARA [Suspect]
     Indication: PSORIASIS
     Route: 058
     Dates: start: 20120608
  3. STELARA [Suspect]
     Indication: PSORIASIS
     Route: 058
     Dates: start: 20120928
  4. STELARA [Suspect]
     Indication: PSORIASIS
     Route: 058
     Dates: start: 20130111, end: 20130111
  5. RENAGEL [Concomitant]
     Route: 048
  6. FOSRENOL [Concomitant]
     Route: 048
  7. BAYASPIRIN [Concomitant]
     Route: 048
  8. DORNER [Concomitant]
     Route: 048
  9. BLOPRESS [Concomitant]
     Route: 048
  10. OXAROL [Concomitant]
     Indication: PSORIASIS
     Route: 061

REACTIONS (2)
  - Diverticulitis [Recovered/Resolved]
  - Cellulitis [Recovered/Resolved]
